FAERS Safety Report 8849242 (Version 4)
Quarter: 2013Q1

REPORT INFORMATION
  Report Type: Spontaneous
  Country: JP (occurrence: JP)
  Receive Date: 20121019
  Receipt Date: 20130305
  Transmission Date: 20140127
  Serious: Yes (Other)
  Sender: FDA-Public Use
  Company Number: JP-JNJFOC-20121003977

PATIENT
  Age: 85 Year
  Sex: Female
  Weight: 44 kg

DRUGS (8)
  1. REMINYL [Suspect]
     Indication: DEMENTIA ALZHEIMER^S TYPE
     Route: 048
     Dates: start: 20120726, end: 20120911
  2. REMINYL [Suspect]
     Indication: DEMENTIA ALZHEIMER^S TYPE
     Route: 048
     Dates: start: 20120614, end: 20120725
  3. GASMOTIN [Suspect]
     Indication: GASTRITIS
     Route: 048
  4. CRESTOR [Suspect]
     Indication: DYSLIPIDAEMIA
     Route: 048
  5. SIGMART [Suspect]
     Indication: ANGINA PECTORIS
     Route: 048
  6. ATENOLOL [Suspect]
     Indication: ANGINA PECTORIS
     Route: 048
  7. PRORENAL [Suspect]
     Indication: LUMBAR SPINAL STENOSIS
     Route: 048
  8. SODIUM PICOSULFATE [Suspect]
     Indication: CONSTIPATION
     Route: 048

REACTIONS (4)
  - White blood cell count decreased [Recovered/Resolved]
  - Gastroenteritis [Recovered/Resolved]
  - Nausea [Recovered/Resolved]
  - Vomiting [Recovered/Resolved]
